FAERS Safety Report 5962129-6 (Version None)
Quarter: 2008Q4

REPORT INFORMATION
  Report Type: 
  Country: None (occurrence: None)
  Receive Date: 20081121
  Receipt Date: 20081114
  Transmission Date: 20090506
  Serious: Yes (Other)
  Sender: FDA-Public Use
  Company Number: US-JNJCH-2008054839

PATIENT
  Age: 19 Year
  Sex: Male
  Weight: 96.2 kg

DRUGS (3)
  1. ZYRTEC [Suspect]
     Indication: HYPERSENSITIVITY
     Route: 048
  2. DEPAKOTE [Suspect]
     Indication: DRUG USE FOR UNKNOWN INDICATION
     Dosage: TEXT:500 MG A DAY
     Route: 065
  3. DRUG, UNSPECIFIED [Concomitant]
     Indication: DRUG USE FOR UNKNOWN INDICATION
     Dosage: TEXT:UNSPECIFIED
     Route: 065

REACTIONS (1)
  - AGGRESSION [None]
